FAERS Safety Report 26059464 (Version 1)
Quarter: 2025Q4

REPORT INFORMATION
  Report Type: Spontaneous
  Country: US (occurrence: US)
  Receive Date: 20251118
  Receipt Date: 20251118
  Transmission Date: 20260118
  Serious: Yes (Death, Hospitalization, Other)
  Sender: AMGEN
  Company Number: US-AMGEN-USASP2025225147

PATIENT
  Sex: Male

DRUGS (2)
  1. VECTIBIX [Suspect]
     Active Substance: PANITUMUMAB
     Indication: Colorectal cancer metastatic
     Dosage: UNK, 4-6 CYCLES
     Route: 065
  2. DOXYCYCLINE [Concomitant]
     Active Substance: DOXYCYCLINE
     Indication: Rash
     Dosage: UNK
     Route: 065

REACTIONS (10)
  - Myocardial infarction [Fatal]
  - Ill-defined disorder [Unknown]
  - Colorectal cancer metastatic [Unknown]
  - Transient ischaemic attack [Unknown]
  - Cerebrovascular accident [Unknown]
  - Seizure [Unknown]
  - Staring [Unknown]
  - Blood magnesium decreased [Unknown]
  - Pleural effusion [Unknown]
  - Rash [Unknown]

NARRATIVE: CASE EVENT DATE: 20250101
